FAERS Safety Report 9261537 (Version 1)
Quarter: 2013Q2

REPORT INFORMATION
  Report Type: Spontaneous
  Country: GB (occurrence: GB)
  Receive Date: 20130429
  Receipt Date: 20130429
  Transmission Date: 20140414
  Serious: Yes (Other)
  Sender: FDA-Public Use
  Company Number: PHHY2013GB040308

PATIENT
  Age: 60 Year
  Sex: Female

DRUGS (2)
  1. DIAZEPAM [Suspect]
     Indication: MUSCULOSKELETAL DISCOMFORT
  2. PROZAC [Concomitant]

REACTIONS (6)
  - Agoraphobia [Unknown]
  - Decreased appetite [Recovered/Resolved]
  - Feeling abnormal [Unknown]
  - Anxiety [Unknown]
  - Agitation [Unknown]
  - Withdrawal syndrome [Unknown]
